FAERS Safety Report 5977037-4 (Version None)
Quarter: 2008Q4

REPORT INFORMATION
  Report Type: 
  Country: None (occurrence: None)
  Receive Date: 20081125
  Receipt Date: 20081111
  Transmission Date: 20090506
  Serious: Yes (Death, Hospitalization, Other)
  Sender: FDA-Public Use
  Company Number: 54218

PATIENT
  Age: 44 Year
  Sex: Female

DRUGS (1)
  1. LABETALOL HCL [Suspect]

REACTIONS (6)
  - BLOOD ETHANOL INCREASED [None]
  - BRONCHITIS [None]
  - DRUG TOXICITY [None]
  - HEPATIC STEATOSIS [None]
  - TUBULOINTERSTITIAL NEPHRITIS [None]
  - VISCERAL CONGESTION [None]
